FAERS Safety Report 24531277 (Version 3)
Quarter: 2024Q4

REPORT INFORMATION
  Report Type: Spontaneous
  Country: US (occurrence: US)
  Receive Date: 20241022
  Receipt Date: 20241029
  Transmission Date: 20250115
  Serious: Yes (Other)
  Sender: UCB
  Company Number: US-UCBSA-2024053053

PATIENT
  Age: 19 Year
  Sex: Male
  Weight: 56.8 kg

DRUGS (2)
  1. FINTEPLA [Suspect]
     Active Substance: FENFLURAMINE
     Indication: Lennox-Gastaut syndrome
     Dosage: 5.9 MILLILITER, 2X/DAY (BID)
     Dates: start: 2023
  2. FINTEPLA [Suspect]
     Active Substance: FENFLURAMINE
     Dosage: 26 MG/DAY
     Dates: start: 20240409

REACTIONS (2)
  - Aortic valve incompetence [Not Recovered/Not Resolved]
  - Aortic dilatation [Unknown]

NARRATIVE: CASE EVENT DATE: 20240404
